FAERS Safety Report 4788996-X (Version None)
Quarter: 2005Q4

REPORT INFORMATION
  Report Type: 
  Country: None (occurrence: None)
  Receive Date: 20051004
  Receipt Date: 20050921
  Transmission Date: 20060501
  Serious: Yes (Hospitalization, Other)
  Sender: FDA-Public Use
  Company Number: 2005132963

PATIENT
  Age: 71 Year
  Sex: Male
  Weight: 78.0187 kg

DRUGS (7)
  1. NORVASC [Suspect]
     Indication: HYPERTENSION
     Dosage: 20 MG (10 MG, 2 IN 1 D),
     Dates: start: 19950101
  2. ZOLOFT [Suspect]
     Indication: CRYING
     Dosage: 50 MG (50 MG, 1 IN 1D),
     Dates: start: 20010101
  3. VITAMIN E [Concomitant]
  4. VITAMIN C (VITAMIN C) [Concomitant]
  5. ATENOLOL [Concomitant]
  6. XANAX [Concomitant]
  7. IBUPROFEN [Concomitant]

REACTIONS (7)
  - APNOEA [None]
  - CORONARY ARTERY OCCLUSION [None]
  - CRYING [None]
  - INCISION SITE COMPLICATION [None]
  - PAIN [None]
  - POSTOPERATIVE INFECTION [None]
  - STAPHYLOCOCCAL INFECTION [None]
